FAERS Safety Report 9501898 (Version 1)
Quarter: 2013Q3

REPORT INFORMATION
  Report Type: Report from Study
  Country: GW (occurrence: GW)
  Receive Date: 20130905
  Receipt Date: 20130905
  Transmission Date: 20140515
  Serious: Yes (Death, Hospitalization)
  Sender: FDA-Public Use
  Company Number: GW-ABBOTT-13P-071-1141774-00

PATIENT
  Sex: Female

DRUGS (5)
  1. KALETRA [Suspect]
     Indication: HIV INFECTION
     Dosage: 400/100MG PER DAY
     Route: 048
     Dates: start: 20111108
  2. ZIDOVUDINE [Concomitant]
     Indication: HIV INFECTION
     Route: 048
     Dates: start: 20111108
  3. LAMIVUDINE [Concomitant]
     Indication: HIV INFECTION
     Route: 048
     Dates: start: 20111108
  4. COTRIMOXAZOLE [Concomitant]
     Indication: PROPHYLAXIS
     Route: 048
     Dates: start: 20111108
  5. FOLIC ACID [Concomitant]
     Indication: VITAMIN SUPPLEMENTATION
     Dosage: 5 MG DAILY
     Dates: start: 20111108

REACTIONS (7)
  - Multi-organ failure [Fatal]
  - Cerebral toxoplasmosis [Unknown]
  - Cryptococcosis [Unknown]
  - Headache [Unknown]
  - Abdominal pain upper [Unknown]
  - Myalgia [Unknown]
  - Pyrexia [Unknown]
